FAERS Safety Report 9991619 (Version 3)
Quarter: 2015Q4

REPORT INFORMATION
  Report Type: Report from Study
  Country: CZ (occurrence: CZ)
  Receive Date: 20140310
  Receipt Date: 20151113
  Transmission Date: 20160305
  Serious: Yes (Hospitalization)
  Sender: FDA-Public Use
  Company Number: CZ-VERTEX PHARMACEUTICALS INC-2014-001054

PATIENT
  Age: 13 Year
  Sex: Female
  Weight: 43 kg

DRUGS (13)
  1. VX-809/VX-770 COMBINATION [Suspect]
     Active Substance: IVACAFTOR\LUMACAFTOR
     Indication: CYSTIC FIBROSIS
     Dosage: LUMACAFTOR 400 MG/IVACAFTOR 250 MG BID
     Route: 048
     Dates: start: 20140227
  2. KREON 25000 [Concomitant]
     Active Substance: PANCRELIPASE
     Indication: PANCREATIC INSUFFICIENCY
     Dosage: 12-14 CAPSULES, QD WITH MEALS
     Dates: start: 2001
  3. AZITHROMYCIN [Concomitant]
     Active Substance: AZITHROMYCIN ANHYDROUS
     Indication: ANTIINFLAMMATORY THERAPY
     Dosage: 250 MG, 4X/WEEK
     Dates: start: 2006
  4. BIOPRON KOMPLEX (PROBIOITCS AND PREBIOTICS) [Concomitant]
     Indication: PROBIOTIC THERAPY
     Dosage: 1 DF, QOD
     Dates: start: 2010
  5. KANAVIT [Concomitant]
     Indication: PANCREATIC INSUFFICIENCY
     Dosage: 5 DF, QD
     Dates: start: 2001
  6. VITAMIN B [Concomitant]
     Active Substance: VITAMIN B
     Indication: BREAST FEEDING
  7. BIOPRON KOMPLEX (PROBIOITCS AND PREBIOTICS) [Concomitant]
     Indication: BREAST FEEDING
  8. PULMOZYME [Concomitant]
     Active Substance: DORNASE ALFA
     Indication: SECRETION DISCHARGE
     Dosage: 1 AMP, QD
     Dates: start: 2005
  9. VIGANTOL [Concomitant]
     Indication: PANCREATIC INSUFFICIENCY
     Dosage: 2 DF, QD
     Dates: start: 2001
  10. VITAMIN B [Concomitant]
     Active Substance: VITAMIN B
     Indication: VITAMIN SUPPLEMENTATION
     Dosage: 1 DF, QOD
     Dates: start: 2001
  11. VITAMIN A [Concomitant]
     Active Substance: VITAMIN A
     Indication: PANCREATIC INSUFFICIENCY
     Dosage: 2 DF, QW
     Dates: start: 2001
  12. SERETIDE [Concomitant]
     Active Substance: FLUTICASONE FUROATE\SALMETEROL XINAFOATE
     Indication: BRONCHIAL HYPERREACTIVITY
     Dosage: (50/100) 2 DF, QD
     Dates: start: 2007
  13. AMILORID [Concomitant]
     Indication: SECRETION DISCHARGE
     Dosage: 3 ML, BID
     Route: 055
     Dates: start: 2001

REACTIONS (1)
  - Respiration abnormal [Recovered/Resolved]

NARRATIVE: CASE EVENT DATE: 20140227
